FAERS Safety Report 7340962-6 (Version None)
Quarter: 2011Q1

REPORT INFORMATION
  Report Type: 
  Country: None (occurrence: None)
  Receive Date: 20110309
  Receipt Date: 20110302
  Transmission Date: 20110831
  Serious: Yes (Hospitalization)
  Sender: FDA-Public Use
  Company Number: FR-ELI_LILLY_AND_COMPANY-FR201004005011

PATIENT
  Age: 77 Year
  Sex: Female
  Weight: 44 kg

DRUGS (10)
  1. CISPLATIN [Suspect]
     Indication: NON-SMALL CELL LUNG CANCER
     Dosage: 75 MG/M2, DAY 1 EVERY 21 DAYS
     Route: 042
     Dates: start: 20100402
  2. VITAMIN B-12 [Concomitant]
     Indication: PROPHYLAXIS
     Dates: start: 20100329
  3. PEMETREXED [Suspect]
     Indication: NON-SMALL CELL LUNG CANCER
     Dosage: 500 MG/M2, DAY 1 EVERY 21 DAYS
     Route: 042
     Dates: start: 20100402
  4. KARDEGIC [Concomitant]
     Indication: CEREBROVASCULAR ACCIDENT
     Dates: start: 19940101
  5. LEVOTHYROXINE SODIUM [Concomitant]
     Indication: HYPOTHYROIDISM
     Dosage: UNK, UNK
     Dates: start: 20080101
  6. SERESTA [Concomitant]
     Indication: DEPRESSION
     Dates: start: 20080101
  7. FOLIC ACID [Concomitant]
     Indication: PROPHYLAXIS
     Dates: start: 20100329
  8. CORTANCYL [Concomitant]
     Indication: PROPHYLAXIS
     Dates: start: 20100401, end: 20100403
  9. PROPRANOLOL [Concomitant]
     Indication: CEREBROVASCULAR ACCIDENT
     Dates: start: 19940101
  10. CYMBALTA [Concomitant]
     Indication: DEPRESSION
     Dates: start: 20080101

REACTIONS (2)
  - GENERAL PHYSICAL HEALTH DETERIORATION [None]
  - DEHYDRATION [None]
